FAERS Safety Report 5224590-4 (Version None)
Quarter: 2007Q1

REPORT INFORMATION
  Report Type: 
  Country: None (occurrence: None)
  Receive Date: 20070126
  Receipt Date: 20061130
  Transmission Date: 20070707
  Serious: Yes (Death)
  Sender: FDA-Public Use
  Company Number: T200601739

PATIENT
  Age: 20 Year

DRUGS (3)
  1. TRAMADOL HYDROCHLORIDE [Suspect]
  2. FENTANYL [Suspect]
  3. CLONAZEPAM [Suspect]

REACTIONS (2)
  - CARDIO-RESPIRATORY ARREST [None]
  - DRUG ABUSER [None]
